FAERS Safety Report 22025034 (Version 1)
Quarter: 2023Q1

REPORT INFORMATION
  Report Type: Spontaneous
  Country: TW (occurrence: TW)
  Receive Date: 20230223
  Receipt Date: 20230223
  Transmission Date: 20230417
  Serious: Yes (Other)
  Sender: FDA-Public Use
  Company Number: TW-STERISCIENCE B.V.-2023-ST-000849

PATIENT
  Sex: Female
  Weight: 1.96 kg

DRUGS (4)
  1. AMPICILLIN [Suspect]
     Active Substance: AMPICILLIN
     Indication: Product used for unknown indication
     Dosage: THE PATIENT^S MOTHER^S DOSE WAS 1 GRAM, Q4H
     Route: 064
  2. AMPICILLIN [Suspect]
     Active Substance: AMPICILLIN
     Dosage: THE PATIENT^S MOTHER^S DOSE WAS 2 GRAM, Q6H
     Route: 064
  3. ERYTHROMYCIN [Suspect]
     Active Substance: ERYTHROMYCIN
     Indication: Product used for unknown indication
     Dosage: THE PATIENT^S MOTHER^S DOSE WAS 250 MILLIGRAM, Q6H
     Route: 064
  4. BETAMETHASONE [Suspect]
     Active Substance: BETAMETHASONE
     Indication: Product used for unknown indication
     Dosage: UNK
     Route: 064

REACTIONS (3)
  - Premature baby [Unknown]
  - Low birth weight baby [Unknown]
  - Foetal exposure during pregnancy [Unknown]
